FAERS Safety Report 10128597 (Version 1)
Quarter: 2014Q2

REPORT INFORMATION
  Report Type: Spontaneous
  Country: US (occurrence: US)
  Receive Date: 20140428
  Receipt Date: 20140428
  Transmission Date: 20141212
  Serious: Yes (Other)
  Sender: FDA-Public Use
  Company Number: US-BEH-2014041902

PATIENT
  Sex: Female
  Weight: 68 kg

DRUGS (18)
  1. HIZENTRA [Suspect]
     Dosage: 2 GM
     Route: 058
  2. ACETAMINOPHEN [Concomitant]
  3. DIPHENHYDRAMINE [Concomitant]
  4. LMX [Concomitant]
  5. EPIPEN [Concomitant]
  6. SINGULAIR [Concomitant]
  7. XYZAL [Concomitant]
  8. DEXAMETHASONE [Concomitant]
  9. SYNTHROID [Concomitant]
  10. DULERA [Concomitant]
  11. MESTINON [Concomitant]
  12. ALPHA-LIPOIC ACID [Concomitant]
  13. ACIPHEX [Concomitant]
  14. XOPENEX [Concomitant]
  15. CYTOMEL [Concomitant]
  16. VITAMIN D [Concomitant]
  17. CHROMAGEN [Concomitant]
  18. PATANASE [Concomitant]

REACTIONS (3)
  - Loss of consciousness [Unknown]
  - Vomiting [Unknown]
  - Adverse event [Unknown]
